FAERS Safety Report 24953562 (Version 2)
Quarter: 2025Q1

REPORT INFORMATION
  Report Type: Report from Study
  Country: US (occurrence: US)
  Receive Date: 20250211
  Receipt Date: 20250219
  Transmission Date: 20250409
  Serious: Yes (Other)
  Sender: TAKEDA
  Company Number: US-TAKEDA-2025TUS013257

PATIENT
  Age: 32 Year
  Sex: Male
  Weight: 82 kg

DRUGS (11)
  1. VEDOLIZUMAB [Suspect]
     Active Substance: VEDOLIZUMAB
     Indication: Colitis ulcerative
     Dosage: 108 MILLIGRAM, Q2WEEKS
     Dates: start: 20240503
  2. VEDOLIZUMAB [Suspect]
     Active Substance: VEDOLIZUMAB
  3. NANDROLONE DECANOATE [Concomitant]
     Active Substance: NANDROLONE DECANOATE
  4. PRASTERONE [Concomitant]
     Active Substance: PRASTERONE
  5. CLOMID [Concomitant]
     Active Substance: CLOMIPHENE CITRATE
  6. ANASTROZOLE [Concomitant]
     Active Substance: ANASTROZOLE
  7. TESTOSTERONE CYPIONATE [Concomitant]
     Active Substance: TESTOSTERONE CYPIONATE
  8. EPINEPHRINE [Concomitant]
     Active Substance: EPINEPHRINE
  9. DIPHENHYDRAMINE HYDROCHLORIDE [Concomitant]
     Active Substance: DIPHENHYDRAMINE HYDROCHLORIDE
  10. SODIUM CHLORIDE [Concomitant]
     Active Substance: SODIUM CHLORIDE
  11. SODIUM CHLORIDE [Concomitant]
     Active Substance: SODIUM CHLORIDE

REACTIONS (6)
  - Colitis ulcerative [Unknown]
  - Rectal haemorrhage [Unknown]
  - Inappropriate schedule of product administration [Unknown]
  - Product distribution issue [Unknown]
  - Product dose omission issue [Unknown]
  - Blister [Unknown]

NARRATIVE: CASE EVENT DATE: 20241201
